FAERS Safety Report 6694603-1 (Version None)
Quarter: 2010Q2

REPORT INFORMATION
  Report Type: 
  Country: None (occurrence: None)
  Receive Date: 20100423
  Receipt Date: 20100414
  Transmission Date: 20101027
  Serious: Yes (Hospitalization)
  Sender: FDA-Public Use
  Company Number: GB-ASTRAZENECA-2010SE11408

PATIENT
  Sex: Female

DRUGS (11)
  1. SEROQUEL XR [Suspect]
     Dosage: 4 TABLETS OF SEROQUEL 400 MG TOTAL 1600 MG
     Route: 048
  2. RAMIPRIL [Concomitant]
  3. HUMALIN I [Concomitant]
  4. MIRTAZAPINE [Concomitant]
  5. GLUCOPHAGE SR [Concomitant]
  6. INDAPAMIDE [Concomitant]
  7. LIPITOR [Concomitant]
     Dosage: 20
  8. ASPIRIN [Concomitant]
  9. GAVISCON [Concomitant]
  10. STILNOCT [Concomitant]
  11. FENOFIBRATE [Concomitant]

REACTIONS (5)
  - CONFUSIONAL STATE [None]
  - ILL-DEFINED DISORDER [None]
  - INCORRECT DOSE ADMINISTERED [None]
  - OVERDOSE [None]
  - SOMNOLENCE [None]
